FAERS Safety Report 5759569-7 (Version None)
Quarter: 2008Q2

REPORT INFORMATION
  Report Type: 
  Country: None (occurrence: None)
  Receive Date: 20080605
  Receipt Date: 20080527
  Transmission Date: 20081010
  Serious: Yes (Other)
  Sender: FDA-Public Use
  Company Number: GB-ASTRAZENECA-2008GB00996

PATIENT
  Sex: Female

DRUGS (1)
  1. ARIMIDEX [Suspect]
     Dosage: 1 MG
     Route: 048

REACTIONS (2)
  - BONE DENSITY DECREASED [None]
  - TOOTH LOSS [None]
